FAERS Safety Report 24623367 (Version 1)
Quarter: 2024Q4

REPORT INFORMATION
  Report Type: Spontaneous
  Country: US (occurrence: US)
  Receive Date: 20241115
  Receipt Date: 20241115
  Transmission Date: 20250114
  Serious: No
  Sender: ROCHE
  Company Number: US-ROCHE-10000124445

PATIENT
  Sex: Male

DRUGS (2)
  1. COLUMVI [Suspect]
     Active Substance: GLOFITAMAB-GXBM
     Indication: B-cell lymphoma
     Dosage: 25% OF DOSE
     Route: 065
     Dates: start: 20241030
  2. GAZYVA [Suspect]
     Active Substance: OBINUTUZUMAB
     Indication: B-cell lymphoma
     Route: 065
     Dates: start: 20241023, end: 20241023

REACTIONS (3)
  - Pruritus [Not Recovered/Not Resolved]
  - Rash [Not Recovered/Not Resolved]
  - Ill-defined disorder [Not Recovered/Not Resolved]

NARRATIVE: CASE EVENT DATE: 20241030
